FAERS Safety Report 9249745 (Version 1)
Quarter: 2013Q2

REPORT INFORMATION
  Report Type: Spontaneous
  Country: US (occurrence: US)
  Receive Date: 20130423
  Receipt Date: 20130423
  Transmission Date: 20140414
  Serious: No
  Sender: FDA-Public Use
  Company Number: US-SANOFI-AVENTIS-2013SA038850

PATIENT
  Age: 69 Year
  Sex: Female

DRUGS (2)
  1. LOVENOX [Suspect]
     Indication: MALIGNANT PERITONEAL NEOPLASM
     Dosage: TAKEN FROM: 1 YEAR AGO
  2. LOVENOX [Suspect]
     Indication: MALIGNANT PERITONEAL NEOPLASM
     Dates: start: 20130331

REACTIONS (3)
  - Swelling [Not Recovered/Not Resolved]
  - Injection site discolouration [Not Recovered/Not Resolved]
  - Injection site mass [Not Recovered/Not Resolved]
